FAERS Safety Report 8364578-8 (Version None)
Quarter: 2012Q2

REPORT INFORMATION
  Report Type: 
  Country: None (occurrence: None)
  Receive Date: 20120516
  Receipt Date: 20120510
  Transmission Date: 20120825
  Serious: Yes (Life-Threatening, Hospitalization)
  Sender: FDA-Public Use
  Company Number: BE-ASTRAZENECA-2012SE30880

PATIENT
  Age: 91 Year
  Sex: Female

DRUGS (2)
  1. SEROQUEL [Suspect]
     Indication: AGGRESSION
     Route: 048
  2. SEROQUEL [Suspect]
     Route: 048
     Dates: start: 20120101

REACTIONS (3)
  - COMA [None]
  - BRADYCARDIA [None]
  - INTENTIONAL DRUG MISUSE [None]
